FAERS Safety Report 8902589 (Version 1)
Quarter: 2012Q4

REPORT INFORMATION
  Report Type: 
  Country: SE (occurrence: SE)
  Receive Date: 20121112
  Receipt Date: 20121112
  Transmission Date: 20130627
  Serious: Yes (Hospitalization)
  Sender: FDA-Public Use
  Company Number: SE-PFIZER INC-2012278130

PATIENT
  Age: 75 Year
  Sex: Male
  Weight: 97.9 kg

DRUGS (8)
  1. GENOTROPIN [Suspect]
     Indication: GROWTH HORMONE DEFICIENCY
     Dosage: 0.4 mg, 1x/day,7 injections/week
     Route: 058
     Dates: start: 20090226
  2. CORTISONE ACETATE [Concomitant]
     Indication: ACTH DECREASED
     Dosage: UNK
     Dates: start: 19871201
  3. DESMOPRESSIN [Concomitant]
     Indication: ANTIDIURETIC HORMONE DECREASED
     Dosage: UNK
     Dates: start: 19871201
  4. DESMOPRESSIN [Concomitant]
     Indication: DIABETES INSIPIDUS
  5. ENALAPRIL [Concomitant]
     Indication: HYPERTENSION
     Dosage: UNK
     Dates: start: 20090101
  6. LEVAXIN [Concomitant]
     Indication: HYPOTHYROIDISM
     Dosage: UNK
     Dates: start: 19990101
  7. NEBIDO [Concomitant]
     Indication: HYPOGONADISM
     Dosage: UNK
     Dates: start: 20090101
  8. HYDROCORTONE [Concomitant]
     Indication: ACTH DECREASED
     Dosage: UNK
     Dates: start: 20090101

REACTIONS (1)
  - Limb injury [Unknown]
